FAERS Safety Report 17278449 (Version 1)
Quarter: 2020Q1

REPORT INFORMATION
  Report Type: Spontaneous
  Country: US (occurrence: US)
  Receive Date: 20200116
  Receipt Date: 20200116
  Transmission Date: 20200409
  Serious: Yes (Death)
  Sender: FDA-Public Use
  Company Number: None

PATIENT
  Age: 82 Year
  Sex: Female

DRUGS (5)
  1. COSENTYX [Suspect]
     Active Substance: SECUKINUMAB
     Indication: PSORIASIS
     Dosage: ?          OTHER FREQUENCY:EVERY 30 DAYS;?
     Route: 058
     Dates: start: 20180308, end: 20200115
  2. FUROSEMIDE TAB 20 MG [Concomitant]
  3. APAP/CODEINE TAB 300-30 MG [Concomitant]
  4. OMEPRAZOLE CAP 20 MG [Concomitant]
  5. METOPROLOL SUC TAB 100 MG ER [Concomitant]

REACTIONS (1)
  - Death [None]
